FAERS Safety Report 22626731 (Version 1)
Quarter: 2023Q2

REPORT INFORMATION
  Report Type: Spontaneous
  Country: NL (occurrence: NL)
  Receive Date: 20230622
  Receipt Date: 20230622
  Transmission Date: 20230721
  Serious: Yes (Hospitalization)
  Sender: FDA-Public Use
  Company Number: None

PATIENT
  Sex: Female
  Weight: 90 kg

DRUGS (3)
  1. IMBRUVICA [Suspect]
     Active Substance: IBRUTINIB
     Indication: Waldenstrom^s macroglobulinaemia
     Route: 048
     Dates: start: 20220414
  2. SEROQUEL [Concomitant]
     Active Substance: QUETIAPINE FUMARATE
     Indication: Product used for unknown indication
     Dosage: 2X 300 MB
  3. QUETIAPINE [Concomitant]
     Active Substance: QUETIAPINE
     Indication: Product used for unknown indication
     Dosage: 600 MG IN THE EVENING

REACTIONS (7)
  - Gastric haemorrhage [Recovering/Resolving]
  - Oesophageal discomfort [Recovered/Resolved]
  - Constipation [Recovered/Resolved]
  - Withdrawal syndrome [Recovering/Resolving]
  - Urinary retention [Recovering/Resolving]
  - Fatigue [Recovered/Resolved]
  - Abdominal discomfort [Recovered/Resolved]
